FAERS Safety Report 18985412 (Version 2)
Quarter: 2021Q1

REPORT INFORMATION
  Report Type: Spontaneous
  Country: NL (occurrence: NL)
  Receive Date: 20210309
  Receipt Date: 20210324
  Transmission Date: 20210420
  Serious: Yes (Other)
  Sender: FDA-Public Use
  Company Number: NL-AUROBINDO-AUR-APL-2021-009443

PATIENT
  Sex: Female

DRUGS (7)
  1. DUODOPA [Suspect]
     Active Substance: CARBIDOPA\LEVODOPA
     Dosage: MD: 12.5ML; CD: 2.3ML/H; ED: 1.5ML
     Route: 050
     Dates: start: 20210202, end: 202102
  2. DUODOPA [Suspect]
     Active Substance: CARBIDOPA\LEVODOPA
     Dosage: MD: 15.5ML; CD: 2.3ML/H; ED: 1.5ML
     Route: 050
     Dates: start: 202102, end: 202102
  3. DUODOPA [Suspect]
     Active Substance: CARBIDOPA\LEVODOPA
     Dosage: MD: 15.5ML; CD: 1.8ML/H; ED: 1.5ML
     Route: 050
     Dates: start: 202102
  4. MADOPAR DISPERSIBL [Concomitant]
     Active Substance: BENSERAZIDE HYDROCHLORIDE\LEVODOPA
     Indication: PARKINSON^S DISEASE
     Dosage: 125 MILLIGRAM, ONCE A DAY
     Route: 048
     Dates: start: 20190201
  5. MADOPAR [Concomitant]
     Active Substance: BENSERAZIDE HYDROCHLORIDE\LEVODOPA
     Indication: PARKINSON^S DISEASE
     Dosage: 1 DOSAGE FORM, 8AM ? 12PM ? 4PM
     Route: 048
     Dates: start: 20140301
  6. DUODOPA [Suspect]
     Active Substance: CARBIDOPA\LEVODOPA
     Indication: PARKINSON^S DISEASE
     Dosage: MD: 15 ML
     Route: 050
  7. AMOXICILLIN. [Suspect]
     Active Substance: AMOXICILLIN
     Indication: STOMA SITE INFECTION
     Dosage: UNK
     Route: 048
     Dates: start: 202102

REACTIONS (20)
  - Stoma site haemorrhage [Not Recovered/Not Resolved]
  - Hypophagia [Recovering/Resolving]
  - Hyperkinesia [Not Recovered/Not Resolved]
  - Stress [Not Recovered/Not Resolved]
  - On and off phenomenon [Recovering/Resolving]
  - Sleep disorder [Not Recovered/Not Resolved]
  - Stoma site infection [Recovered/Resolved]
  - Dyskinesia [Not Recovered/Not Resolved]
  - Nausea [Not Recovered/Not Resolved]
  - Muscle rigidity [Recovered/Resolved]
  - Freezing phenomenon [Not Recovered/Not Resolved]
  - Pain [Recovering/Resolving]
  - Dyschezia [Recovering/Resolving]
  - Stoma complication [Not Recovered/Not Resolved]
  - Hypertension [Not Recovered/Not Resolved]
  - Stoma site pain [Recovering/Resolving]
  - Skin discomfort [Unknown]
  - Unevaluable event [Recovered/Resolved]
  - Medical device site hyperaesthesia [Not Recovered/Not Resolved]
  - Device issue [Unknown]

NARRATIVE: CASE EVENT DATE: 202102
